FAERS Safety Report 10330810 (Version 1)
Quarter: 2014Q3

REPORT INFORMATION
  Report Type: Spontaneous
  Country: US (occurrence: None)
  Receive Date: 20140718
  Receipt Date: 20140718
  Transmission Date: 20150326
  Serious: Yes (Other)
  Sender: FDA-Public Use
  Company Number: None

PATIENT
  Age: 70 Year
  Sex: Female
  Weight: 54.43 kg

DRUGS (2)
  1. RECLAST [Suspect]
     Active Substance: ZOLEDRONIC ACID
     Indication: BONE DENSITY DECREASED
     Dosage: 1XYR. INTO A VEIN
     Route: 042
     Dates: start: 20140514, end: 20140717
  2. RECLAST [Suspect]
     Active Substance: ZOLEDRONIC ACID
     Indication: DRUG THERAPY
     Dosage: 1XYR. INTO A VEIN
     Route: 042
     Dates: start: 20140514, end: 20140717

REACTIONS (5)
  - Bone pain [None]
  - Peripheral swelling [None]
  - Muscle spasms [None]
  - Abasia [None]
  - Myalgia [None]

NARRATIVE: CASE EVENT DATE: 20140607
